FAERS Safety Report 8835428 (Version 1)
Quarter: 2012Q4

REPORT INFORMATION
  Report Type: 
  Country: DE (occurrence: DE)
  Receive Date: 20121011
  Receipt Date: 20121011
  Transmission Date: 20130627
  Serious: Yes (Other)
  Sender: FDA-Public Use
  Company Number: PHHY2012DE088593

PATIENT
  Age: 72 Year
  Sex: Female

DRUGS (2)
  1. TASIGNA [Suspect]
     Indication: CHRONIC MYELOID LEUKAEMIA
     Dosage: 150 mg, BID
     Route: 048
     Dates: start: 201107
  2. ATACAND [Concomitant]
     Indication: HYPERTENSION
     Dosage: 4 mg/day

REACTIONS (3)
  - Arteriosclerosis coronary artery [Unknown]
  - Dyspnoea [Unknown]
  - Nocturia [Unknown]
